FAERS Safety Report 13881982 (Version 9)
Quarter: 2019Q4

REPORT INFORMATION
  Report Type: Report from Study
  Country: US (occurrence: US)
  Receive Date: 20170818
  Receipt Date: 20191220
  Transmission Date: 20200122
  Serious: Yes (Other)
  Sender: FDA-Public Use
  Company Number: US-ROCHE-1975185

PATIENT
  Age: 59 Year
  Sex: Male
  Weight: 106.69 kg

DRUGS (15)
  1. DIVON [Concomitant]
     Dosage: 160-125MG
     Route: 048
  2. MIRTAZAPINE. [Concomitant]
     Active Substance: MIRTAZAPINE
     Dosage: REPORTED AS MIRTAZEPINE ODT?ONGOING YES
     Route: 048
  3. OCREVUS [Suspect]
     Active Substance: OCRELIZUMAB
     Indication: RELAPSING MULTIPLE SCLEROSIS
     Dosage: DAY ONE , DAY 15 THEN EVERY 6 MONTHS?ON 14/JUN/2017, HE RECEIVED HIS THIRD INFUSION OF OCRELIZUMAB?O
     Route: 042
     Dates: start: 20160614
  4. MIRALAX [Concomitant]
     Active Substance: POLYETHYLENE GLYCOL 3350
     Route: 048
  5. ADVIL [IBUPROFEN] [Concomitant]
     Active Substance: IBUPROFEN
     Route: 048
  6. BUPROPION. [Concomitant]
     Active Substance: BUPROPION
     Route: 048
  7. ONDANSETRON [Concomitant]
     Active Substance: ONDANSETRON
     Route: 048
  8. ESOMEPRAZOLE MAGNESIUM. [Concomitant]
     Active Substance: ESOMEPRAZOLE MAGNESIUM
     Dosage: ONGOING YES
     Route: 065
  9. METFORMIN HYDROCHLORIDE. [Concomitant]
     Active Substance: METFORMIN HYDROCHLORIDE
     Indication: TYPE 2 DIABETES MELLITUS
     Dosage: ONGOING YES
     Route: 065
  10. LORAZEPAM. [Concomitant]
     Active Substance: LORAZEPAM
     Dosage: ONGOING YES
     Route: 048
  11. VALSARTAN. [Concomitant]
     Active Substance: VALSARTAN
     Dosage: ONGOING YES
     Route: 065
  12. OCREVUS [Suspect]
     Active Substance: OCRELIZUMAB
     Indication: MULTIPLE SCLEROSIS
  13. GLIPIZIDE. [Concomitant]
     Active Substance: GLIPIZIDE
     Indication: TYPE 2 DIABETES MELLITUS
     Route: 048
  14. ESOMEPRAZOLE. [Concomitant]
     Active Substance: ESOMEPRAZOLE MAGNESIUM
     Indication: GASTROOESOPHAGEAL REFLUX DISEASE
     Route: 048
  15. AMLOD [Concomitant]
     Active Substance: AMLODIPINE BESYLATE

REACTIONS (18)
  - Ophthalmic herpes zoster [Recovering/Resolving]
  - Muscular weakness [Unknown]
  - Vomiting [Unknown]
  - Paraesthesia [Not Recovered/Not Resolved]
  - Helplessness [Unknown]
  - Thinking abnormal [Unknown]
  - Therapeutic response decreased [Unknown]
  - Nausea [Not Recovered/Not Resolved]
  - Malaise [Unknown]
  - Cerebral disorder [Unknown]
  - Paraesthesia [Unknown]
  - Burning sensation [Not Recovered/Not Resolved]
  - Insomnia [Not Recovered/Not Resolved]
  - Herpes zoster [Recovering/Resolving]
  - Therapeutic response shortened [Unknown]
  - Mental disorder [Unknown]
  - Mental fatigue [Unknown]
  - Therapeutic response delayed [Unknown]

NARRATIVE: CASE EVENT DATE: 20170804
